FAERS Safety Report 18418736 (Version 4)
Quarter: 2021Q1

REPORT INFORMATION
  Report Type: Report from Study
  Country: US (occurrence: US)
  Receive Date: 20201023
  Receipt Date: 20210202
  Transmission Date: 20210419
  Serious: Yes (Hospitalization)
  Sender: FDA-Public Use
  Company Number: US-ROCHE-2699251

PATIENT
  Age: 37 Year
  Sex: Male
  Weight: 73.8 kg

DRUGS (13)
  1. BACLOFEN. [Concomitant]
     Active Substance: BACLOFEN
     Dosage: PRN
     Route: 048
  2. IBRUTINIB [Suspect]
     Active Substance: IBRUTINIB
     Indication: DIFFUSE LARGE B-CELL LYMPHOMA
     Dosage: DAYS 1?14, DOSE WAS INTERRUPTED
     Route: 048
     Dates: start: 20200710, end: 20201008
  3. ATOVAQUONE. [Concomitant]
     Active Substance: ATOVAQUONE
     Route: 048
  4. OBINUTUZUMAB. [Suspect]
     Active Substance: OBINUTUZUMAB
     Indication: DIFFUSE LARGE B-CELL LYMPHOMA
     Dosage: D1?2, DOSE WAS INTERRUPTED
     Route: 042
     Dates: start: 20200710, end: 20200926
  5. IBRUTINIB [Suspect]
     Active Substance: IBRUTINIB
     Dosage: CYCLE 5, DAY 1
     Route: 048
     Dates: start: 20201027
  6. LENALIDOMIDE [Suspect]
     Active Substance: LENALIDOMIDE
     Dosage: CYCLE 5, DAY 1
     Route: 048
     Dates: start: 20201027
  7. OBINUTUZUMAB. [Suspect]
     Active Substance: OBINUTUZUMAB
     Dosage: CYCLE 5, DAY 1
     Route: 042
     Dates: start: 20201024
  8. LENALIDOMIDE [Suspect]
     Active Substance: LENALIDOMIDE
     Indication: DIFFUSE LARGE B-CELL LYMPHOMA
     Dosage: DAYS 1?14, DOSE INTERRUPTED
     Route: 048
     Dates: start: 20200710, end: 20201008
  9. VENETOCLAX. [Suspect]
     Active Substance: VENETOCLAX
     Dosage: CYCLE 5, DAY 1
     Route: 048
     Dates: start: 20201027
  10. PREDNISONE. [Suspect]
     Active Substance: PREDNISONE
     Dosage: CYCLE 5, DAY 1
     Route: 048
     Dates: start: 20201027
  11. VALTREX [Concomitant]
     Active Substance: VALACYCLOVIR HYDROCHLORIDE
     Route: 048
  12. VENETOCLAX. [Suspect]
     Active Substance: VENETOCLAX
     Indication: DIFFUSE LARGE B-CELL LYMPHOMA
     Dosage: CYCLE 1, D2?14, DOSE WAS INTERRUPTED
     Route: 048
     Dates: start: 20200711, end: 20201008
  13. PREDNISONE. [Suspect]
     Active Substance: PREDNISONE
     Indication: DIFFUSE LARGE B-CELL LYMPHOMA
     Dosage: DAYS 1?7, DOSE WAS INTERRUPTED
     Route: 048
     Dates: start: 20200710, end: 20201001

REACTIONS (4)
  - Pneumonia [Not Recovered/Not Resolved]
  - Bacteraemia [Not Recovered/Not Resolved]
  - Soft tissue infection [Not Recovered/Not Resolved]
  - Central nervous system infection [Recovering/Resolving]

NARRATIVE: CASE EVENT DATE: 20201015
